FAERS Safety Report 21469748 (Version 1)
Quarter: 2022Q4

REPORT INFORMATION
  Report Type: Other
  Country: CN (occurrence: None)
  Receive Date: 20221018
  Receipt Date: 20221018
  Transmission Date: 20230112
  Serious: Yes (Other)
  Sender: FDA-Public Use
  Company Number: CN-ROCHE-3199487

PATIENT
  Age: 56 Year
  Sex: Female

DRUGS (2)
  1. CAPECITABINE [Suspect]
     Active Substance: CAPECITABINE
     Indication: Pancreatic carcinoma
     Dosage: D1-14
     Route: 048
     Dates: start: 201712, end: 201805
  2. PACLITAXEL [Suspect]
     Active Substance: PACLITAXEL
     Indication: Pancreatic carcinoma
     Dosage: D1, D8, WERE GIVEN FOR 6 CYCLES
     Route: 065
     Dates: start: 201712, end: 201805

REACTIONS (2)
  - Disease progression [Unknown]
  - Metastatic neoplasm [Unknown]
